FAERS Safety Report 8830788 (Version 3)
Quarter: 2012Q4

REPORT INFORMATION
  Report Type: 
  Country: DE (occurrence: DE)
  Receive Date: 20121009
  Receipt Date: 20121119
  Transmission Date: 20130627
  Serious: Yes (Hospitalization, Other)
  Sender: FDA-Public Use
  Company Number: DE-PFIZER INC-2012246911

PATIENT
  Age: 48 Year
  Sex: Female
  Weight: 73 kg

DRUGS (5)
  1. TREVILOR [Suspect]
     Indication: ACUTE AND TRANSIENT PSYCHOTIC DISORDER
     Dosage: 75 mg, UNK
     Dates: start: 2004
  2. CYCLOPHOSPHAMIDE [Suspect]
     Dosage: 6 infusions every 3 weeks for 9 weeks (3 times)
     Dates: end: 200907
  3. CORTISONE [Concomitant]
     Dosage: 9 mg, UNK
     Dates: start: 201005
  4. LITALIR [Concomitant]
  5. IMUREK [Concomitant]

REACTIONS (10)
  - Hypereosinophilic syndrome [Not Recovered/Not Resolved]
  - Rheumatoid arthritis [Unknown]
  - Mobility decreased [Unknown]
  - Arthralgia [Unknown]
  - Joint swelling [Unknown]
  - Fatigue [Unknown]
  - Malaise [Unknown]
  - Drug ineffective for unapproved indication [Unknown]
  - Lung disorder [Unknown]
  - Off label use [Not Recovered/Not Resolved]
